FAERS Safety Report 5214296-X (Version None)
Quarter: 2007Q1

REPORT INFORMATION
  Report Type: 
  Country: None (occurrence: None)
  Receive Date: 20070122
  Receipt Date: 20070110
  Transmission Date: 20070707
  Serious: Yes (Other)
  Sender: FDA-Public Use
  Company Number: JP-MERCK-0701USA02739

PATIENT

DRUGS (1)
  1. INDOCIN [Suspect]
     Route: 064

REACTIONS (1)
  - NECROTISING COLITIS [None]
